FAERS Safety Report 22596768 (Version 1)
Quarter: 2023Q2

REPORT INFORMATION
  Report Type: Spontaneous
  Country: None (occurrence: FR)
  Receive Date: 20230613
  Receipt Date: 20230613
  Transmission Date: 20230721
  Serious: Yes (Death, Life-Threatening, Hospitalization, Other)
  Sender: FDA-Public Use
  Company Number: FR-B.Braun Medical Inc.-2142665

PATIENT
  Age: 74 Year
  Sex: Male

DRUGS (50)
  1. POTASSIUM CHLORIDE [Suspect]
     Active Substance: POTASSIUM CHLORIDE
     Route: 042
  2. ACETAMINOPHEN [Suspect]
     Active Substance: ACETAMINOPHEN
  3. CALCIUM GLUCONATE [Suspect]
     Active Substance: CALCIUM GLUCONATE
  4. PROPOFOL [Suspect]
     Active Substance: PROPOFOL
  5. MIDAZOLAM HYDROCHLORIDE [Suspect]
     Active Substance: MIDAZOLAM HYDROCHLORIDE
  6. SPIRAMYCIN [Suspect]
     Active Substance: SPIRAMYCIN
  7. OXAZEPAM [Suspect]
     Active Substance: OXAZEPAM
  8. RACECADOTRIL [Suspect]
     Active Substance: RACECADOTRIL
  9. PIPERACILLIN AND TAZOBACTAM [Suspect]
     Active Substance: PIPERACILLIN SODIUM\TAZOBACTAM SODIUM
  10. SPIRAMYCIN [Suspect]
     Active Substance: SPIRAMYCIN
  11. URAPIDIL [Suspect]
     Active Substance: URAPIDIL
  12. ENOXAPARIN SODIUM [Suspect]
     Active Substance: ENOXAPARIN SODIUM
  13. AMIODARONE [Suspect]
     Active Substance: AMIODARONE
  14. OTILIMAB [Suspect]
     Active Substance: OTILIMAB
  15. IPRATROPIUM [Suspect]
     Active Substance: IPRATROPIUM
  16. FENOTEROL\IPRATROPIUM [Suspect]
     Active Substance: FENOTEROL\IPRATROPIUM
  17. URAPIDIL [Suspect]
     Active Substance: URAPIDIL
  18. ISOSORBIDE DINITRATE [Suspect]
     Active Substance: ISOSORBIDE DINITRATE
  19. CEFOTAXIME [Suspect]
     Active Substance: CEFOTAXIME SODIUM
  20. CISATRACURIUM BESYLATE [Suspect]
     Active Substance: CISATRACURIUM BESYLATE
  21. UNSPECIFIED INGREDIENT [Suspect]
     Active Substance: UNSPECIFIED INGREDIENT
  22. CALCIUM PHOSPHATE, DIBASIC, ANHYDROUS\MAGNESIUM GLYCEROPHOSPHATE\PHOSP [Suspect]
     Active Substance: CALCIUM PHOSPHATE, DIBASIC, ANHYDROUS\MAGNESIUM GLYCEROPHOSPHATE\PHOSPHORIC ACID\SODIUM PHOSPHATE, D
  23. SERTRALINE [Suspect]
     Active Substance: SERTRALINE HYDROCHLORIDE
  24. THIAMINE HYDROCHLORIDE [Suspect]
     Active Substance: THIAMINE HYDROCHLORIDE
  25. POTASSIUM GLUCONATE [Suspect]
     Active Substance: POTASSIUM GLUCONATE
  26. POLYETHYLENE GLYCOLS [Suspect]
     Active Substance: POLYETHYLENE GLYCOLS
  27. MORPHINE HYDROCHLORIDE [Suspect]
     Active Substance: MORPHINE HYDROCHLORIDE
  28. REMIFENTANIL HYDROCHLORIDE [Suspect]
     Active Substance: REMIFENTANIL HYDROCHLORIDE
  29. INSULIN LISPRO [Suspect]
     Active Substance: INSULIN LISPRO
  30. LOVENOX [Suspect]
     Active Substance: ENOXAPARIN SODIUM
  31. LOPERAMIDE [Suspect]
     Active Substance: LOPERAMIDE
  32. LORAZEPAM [Suspect]
     Active Substance: LORAZEPAM
  33. THIAMINE HYDROCHLORIDE [Suspect]
     Active Substance: THIAMINE HYDROCHLORIDE
  34. MORPHINE SULFATE [Suspect]
     Active Substance: MORPHINE SULFATE
  35. POTASSIUM CHLORIDE [Suspect]
     Active Substance: POTASSIUM CHLORIDE
  36. ISUPREL [Suspect]
     Active Substance: ISOPROTERENOL HYDROCHLORIDE
  37. DIAMOX SEQUELS [Suspect]
     Active Substance: ACETAZOLAMIDE
  38. PIPERACILLIN AND TAZOBACTAM [Suspect]
     Active Substance: PIPERACILLIN SODIUM\TAZOBACTAM SODIUM
  39. METHYLPREDNISOLONE SODIUM SUCCINATE [Suspect]
     Active Substance: METHYLPREDNISOLONE SODIUM SUCCINATE
  40. CLONIDINE HYDROCHLORIDE [Suspect]
     Active Substance: CLONIDINE HYDROCHLORIDE
  41. NOREPINEPHRINE [Suspect]
     Active Substance: NOREPINEPHRINE
  42. LACTULOSE [Suspect]
     Active Substance: LACTULOSE
  43. LORAZEPAM [Suspect]
     Active Substance: LORAZEPAM
  44. HYDROXYZINE [Suspect]
     Active Substance: HYDROXYZINE HYDROCHLORIDE
  45. CALCIUM GLUCONATE [Suspect]
     Active Substance: CALCIUM GLUCONATE
  46. MIDAZOLAM [Suspect]
     Active Substance: MIDAZOLAM
  47. ATORVASTATIN [Concomitant]
     Active Substance: ATORVASTATIN
  48. KARDEGIC [Concomitant]
     Active Substance: ASPIRIN DL-LYSINE
  49. HYDROXYUREA [Concomitant]
     Active Substance: HYDROXYUREA
  50. POTASSIUM GLUCONATE [Concomitant]
     Active Substance: POTASSIUM GLUCONATE

REACTIONS (1)
  - Toxic epidermal necrolysis [Fatal]
